FAERS Safety Report 14268312 (Version 4)
Quarter: 2018Q1

REPORT INFORMATION
  Report Type: Report from Study
  Country: None (occurrence: IE)
  Receive Date: 20171211
  Receipt Date: 20180202
  Transmission Date: 20180508
  Serious: Yes (Hospitalization)
  Sender: FDA-Public Use
  Company Number: IE-CLOVIS-2017-0338-0145

PATIENT
  Age: 67 Year
  Sex: Male
  Weight: 89.9 kg

DRUGS (11)
  1. OXYCODONE [Concomitant]
     Active Substance: OXYCODONE
  2. CO-338 [Suspect]
     Active Substance: RUCAPARIB
     Indication: PROSTATE CANCER
     Route: 048
     Dates: start: 20170906, end: 20171017
  3. PREDNISOLONE. [Concomitant]
     Active Substance: PREDNISOLONE
     Dates: start: 20170829
  4. ZOLEDRONIC ACID [Concomitant]
     Active Substance: ZOLEDRONIC ACID
  5. LEUPROLIDE [Concomitant]
     Active Substance: LEUPROLIDE
  6. CALCIUM [Concomitant]
     Active Substance: CALCIUM
  7. TAMSULOSIN [Concomitant]
     Active Substance: TAMSULOSIN
     Dates: start: 2013, end: 20171018
  8. CO-338 [Suspect]
     Active Substance: RUCAPARIB
     Route: 048
     Dates: start: 20171101
  9. OMEPRAZOLE. [Concomitant]
     Active Substance: OMEPRAZOLE
  10. TRIPTORELIN [Concomitant]
     Active Substance: TRIPTORELIN
  11. ATORVASTATIN [Concomitant]
     Active Substance: ATORVASTATIN

REACTIONS (1)
  - Atrial fibrillation [Recovered/Resolved]

NARRATIVE: CASE EVENT DATE: 20171018
